FAERS Safety Report 11431323 (Version 2)
Quarter: 2015Q3

REPORT INFORMATION
  Report Type: Report from Study
  Country: BE (occurrence: BE)
  Receive Date: 20150828
  Receipt Date: 20150917
  Transmission Date: 20151125
  Serious: No
  Sender: FDA-Public Use
  Company Number: BE-ARIAD PHARMACEUTICALS, INC-2015BE005371

PATIENT

DRUGS (4)
  1. BLINDED PONATINIB [Suspect]
     Active Substance: PONATINIB
  2. PONATINIB [Suspect]
     Active Substance: PONATINIB
     Dosage: 15 MG, BID
     Route: 048
     Dates: start: 20150713, end: 20150726
  3. PONATINIB [Suspect]
     Active Substance: PONATINIB
     Dosage: 30 MG, BID
     Route: 048
     Dates: start: 20150523, end: 20150620
  4. SEROQUEL [Concomitant]
     Active Substance: QUETIAPINE FUMARATE
     Indication: DEPRESSION
     Dosage: UNK
     Route: 048

REACTIONS (3)
  - Hyperhidrosis [Recovered/Resolved]
  - Hypertension [Recovered/Resolved]
  - Chest pain [Recovered/Resolved]

NARRATIVE: CASE EVENT DATE: 20150610
